FAERS Safety Report 20238193 (Version 1)
Quarter: 2021Q4

REPORT INFORMATION
  Report Type: Spontaneous
  Country: NL (occurrence: NL)
  Receive Date: 20211228
  Receipt Date: 20211228
  Transmission Date: 20220303
  Serious: Yes (Hospitalization)
  Sender: FDA-Public Use
  Company Number: None

PATIENT
  Age: 39 Year
  Sex: Female
  Weight: 58 kg

DRUGS (8)
  1. PACLITAXEL [Suspect]
     Active Substance: PACLITAXEL
     Indication: Breast cancer
     Dosage: 80 MG/M2 OP DAG 1 EN 8 VAN IEDERE 3 -WEKELIJKSE KU
     Dates: start: 20210709, end: 20211115
  2. CARBOPLATIN [Suspect]
     Active Substance: CARBOPLATIN
     Indication: Breast cancer
     Dosage: CARBOLPLATIN AUC 6 OP DAG 1 VAN IEDERE 3-WEKELIJKS
     Dates: start: 20210709, end: 20211115
  3. DEXAMETHASONE SODIUM SUCCINATE [Suspect]
     Active Substance: DEXAMETHASONE SODIUM SUCCINATE
     Indication: Prophylaxis
     Dosage: DEXAMETHASON 12 MG OP DAG 1, 8 VAN IEDERE 3WEKEN
     Dates: start: 20210709, end: 20211115
  4. PERTUZUMAB\TRASTUZUMAB [Concomitant]
     Active Substance: PERTUZUMAB\TRASTUZUMAB
     Dosage: PERTUZUMAB 420 MG, TRASTUZUMAB 335 MG OP DAG 1 VAN IEDERE 3 WEKEN
  5. CYANOCOBALAMIN [Concomitant]
     Active Substance: CYANOCOBALAMIN
     Dosage: TABLET, 1000 ?G (MICROGRAM)
  6. Aprepitant Aurobindo [Concomitant]
     Dosage: 125 MG OP DAG 1, 80 MG OP DAG 2 EN 3 VAN IEDERE KUUR
  7. METOCLOPRAMIDE [Concomitant]
     Active Substance: METOCLOPRAMIDE
     Dosage: TABLET, 10 MG (MILLIGRAM)
  8. ONDANSETRON HYDROCHLORIDE [Concomitant]
     Active Substance: ONDANSETRON HYDROCHLORIDE
     Dosage: SMELTTABLET, 8 MG (MILLIGRAM)

REACTIONS (2)
  - Gastric perforation [Recovering/Resolving]
  - Abdominal discomfort [Unknown]

NARRATIVE: CASE EVENT DATE: 20211001
